FAERS Safety Report 6085316-8 (Version None)
Quarter: 2009Q1

REPORT INFORMATION
  Report Type: 
  Country: None (occurrence: None)
  Receive Date: 20090220
  Receipt Date: 20090216
  Transmission Date: 20090719
  Serious: Yes (Hospitalization)
  Sender: FDA-Public Use
  Company Number: US-TYCO HEALTHCARE/MALLINCKRODT-T200900379

PATIENT
  Age: 38 Year
  Sex: Male

DRUGS (1)
  1. LIQUID BAROSPERSE [Suspect]
     Indication: BARIUM ENEMA
     Dosage: UNK

REACTIONS (1)
  - APPENDICITIS [None]
